FAERS Safety Report 9211116 (Version 2)
Quarter: 2013Q2

REPORT INFORMATION
  Report Type: Other
  Country: GB (occurrence: GB)
  Receive Date: 20130404
  Receipt Date: 20130501
  Transmission Date: 20140414
  Serious: Yes (Hospitalization, Other)
  Sender: FDA-Public Use
  Company Number: GB-WATSON-2013-05626

PATIENT
  Age: 70 Year
  Sex: Male

DRUGS (10)
  1. MIRTAZAPINE (UNKNOWN) [Suspect]
     Indication: BIPOLAR DISORDER
     Dosage: 30 MG, DAILY
     Route: 065
     Dates: start: 20121231
  2. OLANZAPINE (UNKNOWN) [Suspect]
     Indication: HYPOMANIA
     Dosage: 7.5MG
     Route: 048
     Dates: start: 20120810, end: 20121101
  3. ABILIFY [Suspect]
     Indication: BIPOLAR DISORDER
     Dosage: 5 MG, DAILY INTERR 2012 RES AUTUMN 2012
     Route: 048
     Dates: start: 2010
  4. WARFARIN [Concomitant]
     Indication: PRODUCT USED FOR UNKNOWN INDICATION
     Dosage: 5MG
     Route: 065
     Dates: start: 201301
  5. BISOPROLOL [Concomitant]
     Indication: PRODUCT USED FOR UNKNOWN INDICATION
     Dosage: 1.25MG
     Route: 065
  6. RAMIPRIL [Concomitant]
     Indication: PRODUCT USED FOR UNKNOWN INDICATION
     Dosage: 2.5MG
     Route: 065
  7. LEVOTHYROXINE [Concomitant]
     Indication: PRODUCT USED FOR UNKNOWN INDICATION
     Dosage: 125 MCG, DAILY
     Route: 065
  8. FOLIC ACID [Concomitant]
     Indication: PRODUCT USED FOR UNKNOWN INDICATION
     Dosage: 5 MG, DAILY
     Route: 065
  9. LANSOPRAZOLE [Concomitant]
     Indication: PRODUCT USED FOR UNKNOWN INDICATION
     Dosage: 30MG
     Route: 065
  10. ATORVASTATIN [Concomitant]
     Indication: PRODUCT USED FOR UNKNOWN INDICATION
     Dosage: 20MG
     Route: 065

REACTIONS (2)
  - Embolism venous [Unknown]
  - Drug ineffective [Not Recovered/Not Resolved]
